FAERS Safety Report 9420106 (Version 1)
Quarter: 2013Q3

REPORT INFORMATION
  Report Type: Spontaneous
  Country: GB (occurrence: GB)
  Receive Date: 20130725
  Receipt Date: 20130725
  Transmission Date: 20140515
  Serious: Yes (Disabling)
  Sender: FDA-Public Use
  Company Number: GB-GLAXOSMITHKLINE-B0909780A

PATIENT
  Age: 11 Month
  Sex: Female
  Weight: 8.7 kg

DRUGS (1)
  1. PAROXETINE [Suspect]
     Indication: DEPRESSION
     Route: 064

REACTIONS (3)
  - Developmental delay [Unknown]
  - Speech disorder developmental [Unknown]
  - Hypotonia [Unknown]
